FAERS Safety Report 8912491 (Version 1)
Quarter: 2012Q4

REPORT INFORMATION
  Report Type: 
  Country: US (occurrence: US)
  Receive Date: 20121116
  Receipt Date: 20121116
  Transmission Date: 20130627
  Serious: No
  Sender: FDA-Public Use
  Company Number: US-009507513-1210USA013907

PATIENT
  Age: 71 Year
  Sex: Female

DRUGS (7)
  1. SINGULAIR [Suspect]
     Dosage: UNK
     Route: 048
  2. VIIBRYD [Interacting]
     Indication: DEPRESSION
     Dosage: 5 mg, qd
     Route: 048
     Dates: start: 20120927
  3. KLONOPIN [Concomitant]
     Indication: ANXIETY
     Dosage: UNK
  4. TEMAZEPAM [Concomitant]
     Dosage: UNK
  5. VITAMINS (UNSPECIFIED) [Concomitant]
     Dosage: UNK
  6. GLUCERNA [Concomitant]
     Dosage: UNK
  7. HIZENTRA [Concomitant]
     Dosage: UNK

REACTIONS (5)
  - Malaise [Not Recovered/Not Resolved]
  - Drug interaction [Unknown]
  - Gastrooesophageal reflux disease [Not Recovered/Not Resolved]
  - Blood glucose decreased [Not Recovered/Not Resolved]
  - Dyspnoea [Not Recovered/Not Resolved]
